FAERS Safety Report 7514938-X (Version None)
Quarter: 2011Q2

REPORT INFORMATION
  Report Type: 
  Country: None (occurrence: None)
  Receive Date: 20110425
  Receipt Date: 20100112
  Transmission Date: 20111010
  Serious: Yes (Life-Threatening)
  Sender: FDA-Public Use
  Company Number: MC201000014

PATIENT

DRUGS (2)
  1. ANGIOMAX [Suspect]
     Indication: PERCUTANEOUS CORONARY INTERVENTION
     Dates: start: 20091201
  2. ANGIOMAX [Suspect]
     Indication: STENT PLACEMENT
     Dates: start: 20091201

REACTIONS (2)
  - THROMBOSIS IN DEVICE [None]
  - CHEST PAIN [None]
